FAERS Safety Report 9275138 (Version 1)
Quarter: 2013Q2

REPORT INFORMATION
  Report Type: Spontaneous
  Country: BR (occurrence: BR)
  Receive Date: 20130507
  Receipt Date: 20130507
  Transmission Date: 20140414
  Serious: Yes (Other)
  Sender: FDA-Public Use
  Company Number: PHHY2013BR044150

PATIENT
  Age: 16 Year
  Sex: Female

DRUGS (1)
  1. RITALINA [Suspect]
     Indication: ATTENTION DEFICIT/HYPERACTIVITY DISORDER
     Dosage: UNK UKN, UNK

REACTIONS (2)
  - Oppositional defiant disorder [Unknown]
  - Epilepsy [Unknown]
